FAERS Safety Report 11430272 (Version 1)
Quarter: 2015Q3

REPORT INFORMATION
  Report Type: Spontaneous
  Country: US (occurrence: US)
  Receive Date: 20150828
  Receipt Date: 20150828
  Transmission Date: 20151125
  Serious: Yes (Hospitalization)
  Sender: FDA-Public Use
  Company Number: US-ROCHE-1001377

PATIENT
  Age: 55 Year
  Sex: Female

DRUGS (6)
  1. PEGASYS [Suspect]
     Active Substance: PEGINTERFERON ALFA-2A
     Route: 058
     Dates: start: 201109, end: 20120108
  2. PEGASYS [Suspect]
     Active Substance: PEGINTERFERON ALFA-2A
     Indication: CHRONIC HEPATITIS C
     Route: 058
     Dates: start: 20110812
  3. COPEGUS [Suspect]
     Active Substance: RIBAVIRIN
     Indication: CHRONIC HEPATITIS C
     Route: 048
     Dates: start: 20110812
  4. OXYGEN. [Concomitant]
     Active Substance: OXYGEN
  5. BROVANA [Concomitant]
     Active Substance: ARFORMOTEROL TARTRATE
  6. IPRATROPIUM [Concomitant]
     Active Substance: IPRATROPIUM
     Route: 065

REACTIONS (22)
  - No adverse event [Unknown]
  - Tinnitus [Unknown]
  - Red blood cell count decreased [Recovered/Resolved]
  - Dizziness [Unknown]
  - Abdominal discomfort [Unknown]
  - Diarrhoea [Recovered/Resolved]
  - Decreased appetite [Unknown]
  - Nausea [Unknown]
  - Viral load increased [Unknown]
  - Diarrhoea [Unknown]
  - Immune system disorder [Unknown]
  - Vomiting [Recovered/Resolved]
  - White blood cell count decreased [Recovered/Resolved]
  - Platelet disorder [Unknown]
  - Alopecia [Unknown]
  - Vomiting [Unknown]
  - Dehydration [Unknown]
  - Extra dose administered [Unknown]
  - Poor quality sleep [Unknown]
  - Sinus disorder [Unknown]
  - Depression [Unknown]
  - Malaise [Unknown]

NARRATIVE: CASE EVENT DATE: 20120312
